FAERS Safety Report 4669066-8 (Version None)
Quarter: 2005Q2

REPORT INFORMATION
  Report Type: 
  Country: None (occurrence: None)
  Receive Date: 20050519
  Receipt Date: 20050503
  Transmission Date: 20051028
  Serious: Yes (Hospitalization)
  Sender: FDA-Public Use
  Company Number: DSA_26385_2005

PATIENT
  Age: 63 Year
  Sex: Female

DRUGS (8)
  1. ATIVAN [Suspect]
     Dosage: DF
     Dates: end: 20040101
  2. PROTONIX [Suspect]
     Dosage: DF
     Dates: end: 20040101
  3. AMBIEN [Suspect]
     Dosage: DF
  4. PLAVIX [Suspect]
     Dosage: DF
     Dates: end: 20040101
  5. SINEQUAN [Suspect]
     Dosage: DF
     Dates: end: 20040101
  6. THALOMID [Suspect]
     Indication: GAMMOPATHY
     Dosage: 200 MG Q DAY PO
     Route: 048
     Dates: start: 20040730
  7. UNSPECIFIED ANTIHYPERTENSIVE AGENT [Suspect]
     Dosage: DF
     Dates: end: 20040101
  8. XANAX [Suspect]
     Dosage: DF

REACTIONS (4)
  - FATIGUE [None]
  - HYPOTENSION [None]
  - INSOMNIA [None]
  - LOSS OF CONSCIOUSNESS [None]
